FAERS Safety Report 8590971-4 (Version None)
Quarter: 2012Q3

REPORT INFORMATION
  Report Type: 
  Country: None (occurrence: None)
  Receive Date: 20120813
  Receipt Date: 20120808
  Transmission Date: 20120928
  Serious: Yes (Hospitalization)
  Sender: FDA-Public Use
  Company Number: CA-B.I. PHARMACEUTICALS,INC./RIDGEFIELD-2012-CN-01636CN

PATIENT
  Age: 67 Year
  Sex: Female

DRUGS (3)
  1. MIRAPEX [Suspect]
     Indication: RESTLESS LEGS SYNDROME
     Dosage: 0.5 MG
     Route: 048
     Dates: start: 20100101, end: 20120703
  2. DALMANE [Concomitant]
     Indication: SLEEP DISORDER
  3. FOSAMAX [Concomitant]
     Indication: BONE DENSITY ABNORMAL

REACTIONS (9)
  - BALANCE DISORDER [None]
  - DECREASED APPETITE [None]
  - VIITH NERVE PARALYSIS [None]
  - MEMORY IMPAIRMENT [None]
  - ARTHRALGIA [None]
  - HALLUCINATION [None]
  - ASTHENIA [None]
  - FALL [None]
  - WEIGHT DECREASED [None]
